FAERS Safety Report 8836141 (Version 1)
Quarter: 2012Q4

REPORT INFORMATION
  Report Type: 
  Country: CA (occurrence: CA)
  Receive Date: 20121011
  Receipt Date: 20121011
  Transmission Date: 20130627
  Serious: Yes (Life-Threatening, Hospitalization, Other)
  Sender: FDA-Public Use
  Company Number: CA-009507513-1210CAN005263

PATIENT
  Age: 55 Year
  Sex: Male

DRUGS (3)
  1. VICTRELIS [Suspect]
     Indication: HEPATITIS C
     Dosage: UNK
     Dates: end: 20121002
  2. PEGASYS [Suspect]
     Indication: HEPATITIS C
     Dosage: 180 Microgram, qw
     Route: 058
     Dates: start: 20120703, end: 20121002
  3. COPEGUS [Suspect]
     Indication: HEPATITIS C
     Dosage: 1400 mg, UNK
     Route: 048
     Dates: start: 20120703, end: 20121002

REACTIONS (2)
  - Myocardial infarction [Unknown]
  - Malaise [Unknown]
